FAERS Safety Report 23285123 (Version 2)
Quarter: 2024Q1

REPORT INFORMATION
  Report Type: Spontaneous
  Country: US (occurrence: None)
  Receive Date: 20231211
  Receipt Date: 20240202
  Transmission Date: 20240410
  Serious: No
  Sender: FDA-Public Use
  Company Number: 2023A271831

PATIENT

DRUGS (1)
  1. FASENRA [Suspect]
     Active Substance: BENRALIZUMAB
     Route: 058

REACTIONS (5)
  - Gout [Unknown]
  - Gait disturbance [Unknown]
  - Injection site pain [Unknown]
  - Device use issue [Unknown]
  - Wrong technique in device usage process [Unknown]
